FAERS Safety Report 12637287 (Version 1)
Quarter: 2016Q3

REPORT INFORMATION
  Report Type: Spontaneous
  Country: US (occurrence: US)
  Receive Date: 20160809
  Receipt Date: 20160809
  Transmission Date: 20161109
  Serious: No
  Sender: FDA-Public Use
  Company Number: US-BEH-2015054937

PATIENT
  Sex: Female
  Weight: 56 kg

DRUGS (42)
  1. CYMBALTA [Concomitant]
     Active Substance: DULOXETINE HYDROCHLORIDE
  2. VITAMIN B12 [Concomitant]
     Active Substance: CYANOCOBALAMIN
  3. XANAX [Concomitant]
     Active Substance: ALPRAZOLAM
  4. VALIUM [Concomitant]
     Active Substance: DIAZEPAM
  5. ENDOCET [Concomitant]
     Active Substance: ACETAMINOPHEN\OXYCODONE HYDROCHLORIDE
  6. MAGNESIUM [Concomitant]
     Active Substance: MAGNESIUM
  7. DILAUDID [Concomitant]
     Active Substance: HYDROMORPHONE HYDROCHLORIDE
  8. PRIVIGEN [Suspect]
     Active Substance: HUMAN IMMUNOGLOBULIN G
     Route: 042
  9. DULCOLAX NOS [Concomitant]
     Active Substance: BISACODYL OR DOCUSATE SODIUM
  10. B+O SUPPOSITORY [Concomitant]
  11. URIBLE [Concomitant]
  12. BENADRYL [Concomitant]
     Active Substance: DIPHENHYDRAMINE HYDROCHLORIDE
  13. SODIUM CHLORIDE. [Concomitant]
     Active Substance: SODIUM CHLORIDE
  14. PROGESTERONE. [Concomitant]
     Active Substance: PROGESTERONE
  15. VICK^S DAYQUIL NIGHTQUIL [Concomitant]
  16. MACROBID [Concomitant]
     Active Substance: NITROFURANTOIN\NITROFURANTOIN MONOHYDRATE
  17. PROBIOTIC [Concomitant]
     Active Substance: PROBIOTICS NOS
  18. ENEMA (SODIUM PHOSPHATE, DIBASIC\SODIUM PHOSPHATE, MONOBASIC) [Concomitant]
     Active Substance: SODIUM PHOSPHATE, DIBASIC\SODIUM PHOSPHATE, MONOBASIC
  19. ZANAFLEX [Concomitant]
     Active Substance: TIZANIDINE HYDROCHLORIDE
  20. STRONTIUM [Concomitant]
     Active Substance: STRONTIUM
  21. SERTRALINE [Concomitant]
     Active Substance: SERTRALINE HYDROCHLORIDE
  22. ESTRACE [Concomitant]
     Active Substance: ESTRADIOL
  23. MIRALAX [Concomitant]
     Active Substance: POLYETHYLENE GLYCOL 3350
  24. LIDODERM [Concomitant]
     Active Substance: LIDOCAINE
  25. PRIVIGEN [Suspect]
     Active Substance: HUMAN IMMUNOGLOBULIN G
     Indication: IMMUNODEFICIENCY COMMON VARIABLE
     Route: 042
  26. OXYCODONE ACETAMINOPHEN [Concomitant]
     Active Substance: ACETAMINOPHEN\OXYCODONE HYDROCHLORIDE
  27. CLARITHROMYCIN. [Concomitant]
     Active Substance: CLARITHROMYCIN
  28. ALLERGY SHOTS [Concomitant]
     Active Substance: UNSPECIFIED INGREDIENT
  29. CYANOCOBALAMIN. [Concomitant]
     Active Substance: CYANOCOBALAMIN
  30. ESTRADIOL. [Concomitant]
     Active Substance: ESTRADIOL
  31. DIPHENHYDRAMINE. [Concomitant]
     Active Substance: DIPHENHYDRAMINE
  32. PROMETHAZINE [Concomitant]
     Active Substance: PROMETHAZINE\PROMETHAZINE HYDROCHLORIDE
  33. MELATONIN [Concomitant]
     Active Substance: MELATONIN
  34. AMBIEN CR [Concomitant]
     Active Substance: ZOLPIDEM TARTRATE
  35. HYOMAX [Concomitant]
     Active Substance: HYOSCYAMINE SULFATE
  36. IBUPROFEN. [Concomitant]
     Active Substance: IBUPROFEN
  37. EPIPEN [Concomitant]
     Active Substance: EPINEPHRINE
     Indication: ANAPHYLACTIC REACTION
  38. LMX [Concomitant]
     Active Substance: LIDOCAINE
  39. ZOFRAN [Concomitant]
     Active Substance: ONDANSETRON HYDROCHLORIDE
  40. CLARITIN [Concomitant]
     Active Substance: LORATADINE
  41. LIDOCAINE. [Concomitant]
     Active Substance: LIDOCAINE
  42. VITAMIN D3 [Concomitant]
     Active Substance: CHOLECALCIFEROL

REACTIONS (1)
  - Urinary tract infection [Unknown]
